FAERS Safety Report 9056391 (Version 1)
Quarter: 2013Q1

REPORT INFORMATION
  Report Type: Spontaneous
  Country: CA (occurrence: CA)
  Receive Date: 20130204
  Receipt Date: 20130204
  Transmission Date: 20140127
  Serious: Yes (Other)
  Sender: FDA-Public Use
  Company Number: PHHY2012CA124237

PATIENT
  Sex: Female

DRUGS (2)
  1. ACLASTA [Suspect]
     Indication: OSTEOPOROSIS
     Dosage: UNK
     Route: 042
     Dates: start: 20101203
  2. ACLASTA [Suspect]
     Dosage: UNK
     Route: 042
     Dates: start: 20111215

REACTIONS (4)
  - Cystitis [Unknown]
  - Thyroid disorder [Unknown]
  - Blood pressure increased [Unknown]
  - Malaise [Unknown]
